FAERS Safety Report 5375180-4 (Version None)
Quarter: 2007Q2

REPORT INFORMATION
  Report Type: 
  Country: None (occurrence: None)
  Receive Date: 20070629
  Receipt Date: 20060712
  Transmission Date: 20071010
  Serious: Yes (Other)
  Sender: FDA-Public Use
  Company Number: US-ASTRAZENECA-2006UW14417

PATIENT
  Age: 82 Year
  Sex: Female
  Weight: 88.5 kg

DRUGS (3)
  1. TAMOXIFEN CITRATE [Suspect]
     Route: 048
  2. AVAPRO [Concomitant]
  3. LASIX [Concomitant]

REACTIONS (1)
  - THROMBOSIS [None]
